FAERS Safety Report 9412873 (Version 1)
Quarter: 2013Q3

REPORT INFORMATION
  Report Type: Spontaneous
  Country: IT (occurrence: IT)
  Receive Date: 20130722
  Receipt Date: 20130722
  Transmission Date: 20140515
  Serious: Yes (Other)
  Sender: FDA-Public Use
  Company Number: PHHY2013IT076657

PATIENT
  Age: 27 Year
  Sex: Male

DRUGS (3)
  1. LANSOPRAZOLE [Suspect]
     Indication: ABDOMINAL PAIN UPPER
     Dosage: 1 U, QD
     Route: 048
     Dates: start: 20130601, end: 20130606
  2. NORMIX [Concomitant]
  3. GASTROGEL//SUCRALFATE [Concomitant]

REACTIONS (3)
  - Arrhythmia supraventricular [Recovering/Resolving]
  - Hypokalaemia [Recovering/Resolving]
  - Diarrhoea [Recovering/Resolving]
